FAERS Safety Report 18380085 (Version 2)
Quarter: 2020Q4

REPORT INFORMATION
  Report Type: Report from Study
  Country: TW (occurrence: TW)
  Receive Date: 20201014
  Receipt Date: 20201020
  Transmission Date: 20210114
  Serious: Yes (Hospitalization, Other)
  Sender: FDA-Public Use
  Company Number: TW-SA-2020SA282008

PATIENT

DRUGS (2)
  1. FABRAZYME [Suspect]
     Active Substance: AGALSIDASE BETA
     Dosage: 2 DF, QOW (2 VIALS)
     Route: 041
     Dates: start: 20201008
  2. FABRAZYME [Suspect]
     Active Substance: AGALSIDASE BETA
     Dosage: 2 DF, QOW (2 VIALS)
     Route: 041
     Dates: end: 20201008

REACTIONS (6)
  - Dyspnoea [Recovered/Resolved]
  - Paraesthesia [Not Recovered/Not Resolved]
  - Dyspnoea [Recovering/Resolving]
  - Hypoaesthesia [Not Recovered/Not Resolved]
  - Restlessness [Recovered/Resolved]
  - Chills [Recovered/Resolved]

NARRATIVE: CASE EVENT DATE: 20201008
